FAERS Safety Report 5891974-0 (Version None)
Quarter: 2008Q3

REPORT INFORMATION
  Report Type: 
  Country: None (occurrence: None)
  Receive Date: 20080922
  Receipt Date: 20080910
  Transmission Date: 20090109
  Serious: Yes (Other)
  Sender: FDA-Public Use
  Company Number: JP-PFIZER INC-2008076998

PATIENT

DRUGS (2)
  1. ZITHROMAX [Suspect]
     Route: 048
  2. LOXONIN [Interacting]

REACTIONS (2)
  - CONVULSION [None]
  - DRUG INTERACTION [None]
